FAERS Safety Report 13522766 (Version 1)
Quarter: 2017Q2

REPORT INFORMATION
  Report Type: Report from Study
  Country: None (occurrence: CA)
  Receive Date: 20170508
  Receipt Date: 20170508
  Transmission Date: 20170830
  Serious: Yes (Hospitalization)
  Sender: FDA-Public Use
  Company Number: CA-ABBVIE-17P-028-1939977-00

PATIENT
  Age: 77 Year
  Sex: Male

DRUGS (1)
  1. HUMIRA [Suspect]
     Active Substance: ADALIMUMAB
     Indication: CROHN^S DISEASE
     Route: 058
     Dates: start: 20161213, end: 20170404

REACTIONS (8)
  - Chills [Recovered/Resolved]
  - Adverse reaction [Unknown]
  - Drug ineffective [Unknown]
  - Anal abscess [Unknown]
  - Haematochezia [Not Recovered/Not Resolved]
  - Fistula [Unknown]
  - Frequent bowel movements [Not Recovered/Not Resolved]
  - Crohn^s disease [Unknown]

NARRATIVE: CASE EVENT DATE: 2017
